FAERS Safety Report 20645917 (Version 1)
Quarter: 2022Q1

REPORT INFORMATION
  Report Type: Spontaneous
  Country: US (occurrence: US)
  Receive Date: 20220329
  Receipt Date: 20220329
  Transmission Date: 20220423
  Serious: Yes (Hospitalization, Other)
  Sender: FDA-Public Use
  Company Number: US-UNITED THERAPEUTICS-UNT-2022-005401

PATIENT
  Age: 78 Year
  Sex: Male

DRUGS (3)
  1. TYVASO [Suspect]
     Active Substance: TREPROSTINIL
     Indication: Pulmonary arterial hypertension
     Dosage: UNK
     Dates: start: 20201215
  2. TYVASO [Suspect]
     Active Substance: TREPROSTINIL
     Dosage: 90-120 ?G, QID
  3. AMLODIPINE [Concomitant]
     Active Substance: AMLODIPINE BESYLATE
     Indication: Product used for unknown indication
     Dosage: UNK
     Route: 065

REACTIONS (3)
  - Sepsis [Unknown]
  - Device electrical finding [Unknown]
  - Off label use [Unknown]

NARRATIVE: CASE EVENT DATE: 20220301
